FAERS Safety Report 7498000-0 (Version None)
Quarter: 2011Q2

REPORT INFORMATION
  Report Type: 
  Country: None (occurrence: None)
  Receive Date: 20110524
  Receipt Date: 20110513
  Transmission Date: 20111010
  Serious: No
  Sender: FDA-Public Use
  Company Number: US-BIOGENIDEC-2011BI012046

PATIENT
  Age: 48 Year
  Sex: Female

DRUGS (1)
  1. TYSABRI [Suspect]
     Indication: MULTIPLE SCLEROSIS
     Route: 042
     Dates: start: 20110322

REACTIONS (16)
  - DYSURIA [None]
  - CHEST PAIN [None]
  - FUNGAL INFECTION [None]
  - FATIGUE [None]
  - DYSPEPSIA [None]
  - NAUSEA [None]
  - SINUSITIS [None]
  - CHROMATURIA [None]
  - COORDINATION ABNORMAL [None]
  - MOTOR DYSFUNCTION [None]
  - ARTHRALGIA [None]
  - GAIT DISTURBANCE [None]
  - BACK PAIN [None]
  - CYSTITIS [None]
  - ORAL HERPES [None]
  - DIZZINESS [None]
